FAERS Safety Report 25721954 (Version 1)
Quarter: 2025Q3

REPORT INFORMATION
  Report Type: Report from Study
  Country: EU (occurrence: EU)
  Receive Date: 20250825
  Receipt Date: 20250825
  Transmission Date: 20251021
  Serious: Yes (Death, Life-Threatening, Other)
  Sender: CELLTRION
  Company Number: EU-ROCHE-10000229668

PATIENT

DRUGS (5)
  1. RITUXIMAB [Suspect]
     Active Substance: RITUXIMAB
     Indication: Central nervous system lymphoma
     Route: 065
  2. RITUXIMAB [Suspect]
     Active Substance: RITUXIMAB
     Dosage: 375 MILLIGRAM/SQ. METER, Q3W (ON DAY 1, EVERY 3 WEEKS)
     Route: 065
  3. CYTARABINE [Suspect]
     Active Substance: CYTARABINE
     Indication: Central nervous system lymphoma
     Route: 065
  4. CYTARABINE [Suspect]
     Active Substance: CYTARABINE
     Indication: Central nervous system lymphoma
     Dosage: 3 GRAM PER SQUARE METRE, Q3W (HIGH-DOSE CYTARABINE 3 G/M2 TWICE DAILY ON DAY 1 AND DAY 2, EVERY 3 WE
  5. CYTARABINE [Suspect]
     Active Substance: CYTARABINE

REACTIONS (4)
  - Disease progression [Fatal]
  - Drug ineffective [Fatal]
  - Haematotoxicity [Unknown]
  - Infection [Unknown]
